FAERS Safety Report 14969779 (Version 1)
Quarter: 2018Q2

REPORT INFORMATION
  Report Type: Spontaneous
  Country: US (occurrence: US)
  Receive Date: 20180604
  Receipt Date: 20180604
  Transmission Date: 20180711
  Serious: Yes (Hospitalization)
  Sender: FDA-Public Use
  Company Number: US-NOVOPROD-602812

PATIENT
  Age: 87 Year
  Sex: Female
  Weight: 69.84 kg

DRUGS (2)
  1. LEVEMIR [Suspect]
     Active Substance: INSULIN DETEMIR
     Indication: TYPE 2 DIABETES MELLITUS
     Dosage: 20 U, QD IN THE MORNING
     Route: 058
     Dates: start: 2016
  2. HUMALOG [Suspect]
     Active Substance: INSULIN LISPRO
     Indication: TYPE 2 DIABETES MELLITUS
     Dosage: 6 U, TID BEFORE MEALS
     Route: 058

REACTIONS (2)
  - Brain operation [Unknown]
  - Tremor [Unknown]

NARRATIVE: CASE EVENT DATE: 201802
